FAERS Safety Report 16469662 (Version 2)
Quarter: 2020Q2

REPORT INFORMATION
  Report Type: Spontaneous
  Country: US (occurrence: US)
  Receive Date: 20190624
  Receipt Date: 20200507
  Transmission Date: 20200713
  Serious: No
  Sender: FDA-Public Use
  Company Number: US-SA-2019SA168245

PATIENT
  Age: 13 Year
  Sex: Male

DRUGS (1)
  1. LUMIZYME [Suspect]
     Active Substance: ALGLUCOSIDASE ALFA
     Indication: GLYCOGEN STORAGE DISEASE TYPE II
     Dosage: STRENGTH: 50 MG; 800 MG, QOW
     Route: 042
     Dates: start: 20141022

REACTIONS (2)
  - Product dose omission [Unknown]
  - Poor venous access [Unknown]

NARRATIVE: CASE EVENT DATE: 20190614
